FAERS Safety Report 5782241-4 (Version None)
Quarter: 2008Q2

REPORT INFORMATION
  Report Type: 
  Country: None (occurrence: None)
  Receive Date: 20080623
  Receipt Date: 20080616
  Transmission Date: 20081010
  Serious: Yes (Other)
  Sender: FDA-Public Use
  Company Number: US-JNJFOC-20080604821

PATIENT
  Sex: Female

DRUGS (1)
  1. IBUROFEN [Suspect]
     Indication: FIBROMYALGIA

REACTIONS (3)
  - ABASIA [None]
  - ANKLE FRACTURE [None]
  - MUSCULAR WEAKNESS [None]
